FAERS Safety Report 5445959-9 (Version None)
Quarter: 2007Q3

REPORT INFORMATION
  Report Type: 
  Country: None (occurrence: None)
  Receive Date: 20070904
  Receipt Date: 20070820
  Transmission Date: 20080115
  Serious: Yes (Other)
  Sender: FDA-Public Use
  Company Number: CIP07001562

PATIENT
  Age: 61 Year
  Sex: Female

DRUGS (2)
  1. ACTONEL [Suspect]
     Indication: OSTEOPOROSIS
     Dosage: 1 TABLET CYCLIC DAILY, ORAL
     Route: 048
  2. LIPITOR [Concomitant]

REACTIONS (1)
  - BREAST CANCER FEMALE [None]
